FAERS Safety Report 5341059-7 (Version None)
Quarter: 2007Q2

REPORT INFORMATION
  Report Type: 
  Country: None (occurrence: None)
  Receive Date: 20070530
  Receipt Date: 20070511
  Transmission Date: 20071010
  Serious: Yes (Hospitalization, Other)
  Sender: FDA-Public Use
  Company Number: MC200700390

PATIENT
  Age: 80 Year
  Sex: Female
  Weight: 61.7 kg

DRUGS (1)
  1. ANGIOMAX [Suspect]
     Indication: PERIPHERAL REVASCULARISATION
     Dosage: SEE IMAGE
     Route: 040
     Dates: start: 20070502, end: 20070502

REACTIONS (5)
  - DISEASE RECURRENCE [None]
  - GANGRENE [None]
  - PERIPHERAL ISCHAEMIA [None]
  - THROMBOSIS [None]
  - TREATMENT FAILURE [None]
